FAERS Safety Report 8387996-0 (Version None)
Quarter: 2012Q2

REPORT INFORMATION
  Report Type: 
  Country: None (occurrence: None)
  Receive Date: 20120525
  Receipt Date: 20120521
  Transmission Date: 20120825
  Serious: Yes (Hospitalization)
  Sender: FDA-Public Use
  Company Number: PHHY2012IT043962

PATIENT
  Sex: Female

DRUGS (8)
  1. LASITONE [Suspect]
     Indication: CARDIAC FAILURE
     Dosage: 1 DF, UNK
     Route: 048
     Dates: start: 20120502, end: 20120506
  2. LASIX [Suspect]
     Indication: CARDIAC FAILURE
     Dosage: 50 MG, UNK
     Route: 048
     Dates: start: 20120502, end: 20120506
  3. VALSARTAN [Suspect]
     Indication: CARDIAC FAILURE
     Dosage: 40 MG, DAILY
     Route: 048
     Dates: start: 20120502, end: 20120506
  4. BISOPROLOL FUMARATE [Concomitant]
     Indication: CARDIAC FAILURE
     Dosage: 2.5 MG
     Route: 048
     Dates: start: 20120502, end: 20120506
  5. PLAVIX [Concomitant]
     Indication: ACUTE MYOCARDIAL INFARCTION
     Dosage: 75 MG, UNK
     Route: 048
     Dates: start: 20120502, end: 20120506
  6. RAMIPRIL [Suspect]
     Indication: CARDIAC FAILURE
     Dosage: 5 MG, DAILY
     Route: 048
     Dates: start: 20120502, end: 20120506
  7. ASPIRIN [Concomitant]
     Indication: ACUTE MYOCARDIAL INFARCTION
     Dosage: 100 MG
     Route: 048
     Dates: start: 20120502, end: 20120506
  8. ATORVASTATIN CALCIUM [Concomitant]
     Indication: ACUTE MYOCARDIAL INFARCTION
     Dosage: 20 MG, UNK
     Route: 048
     Dates: start: 20120502, end: 20120506

REACTIONS (5)
  - FEELING COLD [None]
  - TREMOR [None]
  - RENAL FAILURE [None]
  - CHEST PAIN [None]
  - DRY MOUTH [None]
